FAERS Safety Report 9791383 (Version 2)
Quarter: 2014Q1

REPORT INFORMATION
  Report Type: Spontaneous
  Country: GB (occurrence: GB)
  Receive Date: 20140101
  Receipt Date: 20140128
  Transmission Date: 20141002
  Serious: Yes (Other)
  Sender: FDA-Public Use
  Company Number: PHFR2013GB007322

PATIENT
  Age: 73 Year
  Sex: Male

DRUGS (3)
  1. EVEROLIMUS [Suspect]
     Indication: METASTATIC RENAL CELL CARCINOMA
     Dates: start: 201211
  2. LENVATINIB [Suspect]
     Indication: METASTATIC RENAL CELL CARCINOMA
  3. PARACETAMOL [Concomitant]
     Dosage: 7 MG

REACTIONS (3)
  - Toxicity to various agents [Unknown]
  - Dyspnoea [Unknown]
  - Malignant neoplasm progression [Unknown]
